FAERS Safety Report 6027250-5 (Version None)
Quarter: 2008Q4

REPORT INFORMATION
  Report Type: 
  Country: None (occurrence: None)
  Receive Date: 20081231
  Receipt Date: 20081231
  Transmission Date: 20090506
  Serious: No
  Sender: FDA-Public Use
  Company Number: None

PATIENT
  Age: 50 Year
  Sex: Male
  Weight: 74.8435 kg

DRUGS (2)
  1. PAXIL [Suspect]
     Indication: DEPRESSION
  2. PROZAC [Suspect]
     Indication: DEPRESSION

REACTIONS (5)
  - ANORGASMIA [None]
  - ERECTILE DYSFUNCTION [None]
  - LIBIDO DECREASED [None]
  - PREMATURE EJACULATION [None]
  - VERTIGO [None]
